FAERS Safety Report 23038817 (Version 1)
Quarter: 2023Q4

REPORT INFORMATION
  Report Type: Spontaneous
  Country: US (occurrence: None)
  Receive Date: 20231006
  Receipt Date: 20231006
  Transmission Date: 20240110
  Serious: Yes (Hospitalization)
  Sender: FDA-Public Use
  Company Number: None

PATIENT
  Age: 49 Year
  Sex: Female
  Weight: 141 kg

DRUGS (5)
  1. FLUOROURACIL [Suspect]
     Active Substance: FLUOROURACIL
     Dates: end: 20230913
  2. XELODA [Suspect]
     Active Substance: CAPECITABINE
     Dates: end: 20230720
  3. IRINOTECAN [Suspect]
     Active Substance: IRINOTECAN
     Dates: end: 20230913
  4. LEUCOVORIN CALCIUM [Suspect]
     Active Substance: LEUCOVORIN CALCIUM
     Dates: end: 20230913
  5. ELOXATIN [Suspect]
     Active Substance: OXALIPLATIN
     Dates: end: 20230913

REACTIONS (2)
  - Hypokalaemia [None]
  - Diarrhoea [None]

NARRATIVE: CASE EVENT DATE: 20230918
